FAERS Safety Report 4630559-0 (Version None)
Quarter: 2005Q2

REPORT INFORMATION
  Report Type: 
  Country: None (occurrence: None)
  Receive Date: 20050408
  Receipt Date: 20050223
  Transmission Date: 20051028
  Serious: Yes (Hospitalization)
  Sender: FDA-Public Use
  Company Number: DE-GLAXOSMITHKLINE-D0045977A

PATIENT
  Age: 14 Year
  Sex: Male
  Weight: 24 kg

DRUGS (2)
  1. LAMICTAL [Suspect]
     Indication: EPILEPSY
     Dosage: 50MG PER DAY
     Route: 048
  2. ORFIRIL [Suspect]
     Indication: EPILEPSY
     Dosage: 600MG PER DAY
     Route: 048
     Dates: start: 20030101

REACTIONS (3)
  - ANAPHYLACTIC REACTION [None]
  - TOXIC EPIDERMAL NECROLYSIS [None]
  - URTICARIA GENERALISED [None]
